FAERS Safety Report 18211926 (Version 2)
Quarter: 2021Q1

REPORT INFORMATION
  Report Type: Spontaneous
  Country: FI (occurrence: FI)
  Receive Date: 20200831
  Receipt Date: 20210126
  Transmission Date: 20210419
  Serious: Yes (Other)
  Sender: FDA-Public Use
  Company Number: FI-ROCHE-2651046

PATIENT
  Age: 62 Year
  Sex: Female

DRUGS (3)
  1. TECENTRIQ [Suspect]
     Active Substance: ATEZOLIZUMAB
     Indication: TRIPLE NEGATIVE BREAST CANCER
     Dosage: D1 AND D15 / 28
     Route: 042
     Dates: start: 20200626
  2. TECENTRIQ [Suspect]
     Active Substance: ATEZOLIZUMAB
     Route: 041
     Dates: start: 20200724
  3. NAB?PACLITAXEL [Suspect]
     Active Substance: PACLITAXEL
     Indication: TRIPLE NEGATIVE BREAST CANCER
     Dosage: D1, D8 AND D15/28
     Route: 042
     Dates: start: 20200626

REACTIONS (8)
  - Erythema [Not Recovered/Not Resolved]
  - Eczema [Recovering/Resolving]
  - Fatigue [Unknown]
  - Hair colour changes [Not Recovered/Not Resolved]
  - Cytopenia [Unknown]
  - Pruritus [Unknown]
  - Rash macular [Not Recovered/Not Resolved]
  - Nausea [Unknown]

NARRATIVE: CASE EVENT DATE: 20200722
